FAERS Safety Report 13822051 (Version 1)
Quarter: 2017Q3

REPORT INFORMATION
  Report Type: Spontaneous
  Country: AU (occurrence: AU)
  Receive Date: 20170801
  Receipt Date: 20170801
  Transmission Date: 20171127
  Serious: Yes (Other)
  Sender: FDA-Public Use
  Company Number: AU-MYLANLABS-2017M1046665

PATIENT

DRUGS (2)
  1. DIDANOSINE. [Suspect]
     Active Substance: DIDANOSINE
     Indication: HIV INFECTION
     Route: 065
  2. ZIDOVUDINE. [Concomitant]
     Active Substance: ZIDOVUDINE
     Indication: HIV INFECTION
     Route: 065

REACTIONS (4)
  - Splenomegaly [Unknown]
  - Gastrointestinal haemorrhage [Unknown]
  - Gastric varices [Unknown]
  - Non-cirrhotic portal hypertension [Unknown]

NARRATIVE: CASE EVENT DATE: 2004
